FAERS Safety Report 8542516-2 (Version None)
Quarter: 2012Q3

REPORT INFORMATION
  Report Type: 
  Country: None (occurrence: None)
  Receive Date: 20120726
  Receipt Date: 20110810
  Transmission Date: 20120928
  Serious: Yes (Other)
  Sender: FDA-Public Use
  Company Number: US-ASTRAZENECA-2011SE47729

PATIENT
  Sex: Female

DRUGS (8)
  1. PRISTIQ [Concomitant]
  2. SEROQUEL [Suspect]
     Route: 048
     Dates: start: 20110427
  3. SEROQUEL [Suspect]
     Indication: BIPOLAR DISORDER
     Route: 048
  4. LISINOPRIL [Concomitant]
     Indication: HYPERTENSION
  5. ALPRAZOLAM [Concomitant]
  6. SEROQUEL [Suspect]
     Route: 048
  7. SEROQUEL [Suspect]
     Dosage: 50 MG DAILY AS NEEDED
     Route: 048
  8. LEVOTHYROXINE SODIUM [Concomitant]
     Indication: THYROID DISORDER

REACTIONS (2)
  - SUICIDAL BEHAVIOUR [None]
  - WRONG TECHNIQUE IN DRUG USAGE PROCESS [None]
